FAERS Safety Report 10927259 (Version 1)
Quarter: 2015Q1

REPORT INFORMATION
  Report Type: Spontaneous
  Country: CA (occurrence: CA)
  Receive Date: 20150318
  Receipt Date: 20150318
  Transmission Date: 20150721
  Serious: Yes (Other)
  Sender: FDA-Public Use
  Company Number: CA-GLAXOSMITHKLINE-CA2014GSK053648

PATIENT
  Sex: Female
  Weight: 90 kg

DRUGS (19)
  1. CIPROFLOXACIN. [Suspect]
     Active Substance: CIPROFLOXACIN
     Indication: LUNG INFECTION
     Dosage: UNK, U
     Route: 065
     Dates: start: 201401, end: 201401
  2. ACTEMRA [Suspect]
     Active Substance: TOCILIZUMAB
     Dosage: 364 MG, EVERY 4 WEEKS
     Route: 042
     Dates: start: 20110524
  3. PREDNISONE. [Concomitant]
     Active Substance: PREDNISONE
  4. DIOVAN [Concomitant]
     Active Substance: VALSARTAN
  5. FLOVENT [Concomitant]
     Active Substance: FLUTICASONE PROPIONATE
  6. TYLENOL [Concomitant]
     Active Substance: ACETAMINOPHEN
  7. MAGNESIUM [Concomitant]
     Active Substance: MAGNESIUM
  8. POTASSIUM CHLORIDE. [Concomitant]
     Active Substance: POTASSIUM CHLORIDE
  9. RYTHMOL [Suspect]
     Active Substance: PROPAFENONE HYDROCHLORIDE
     Indication: PALPITATIONS
     Dosage: 150 MG, TID
     Route: 065
     Dates: start: 2012
  10. ATORVASTATIN CALCIUM. [Suspect]
     Active Substance: ATORVASTATIN CALCIUM
     Indication: PRODUCT USED FOR UNKNOWN INDICATION
     Dosage: 10 MG, QD
     Route: 048
  11. FOLIC ACID. [Concomitant]
     Active Substance: FOLIC ACID
  12. ACTEMRA [Suspect]
     Active Substance: TOCILIZUMAB
     Indication: RHEUMATOID ARTHRITIS
     Dosage: 628.8 MG EVERY 4 WEEKS
     Route: 042
     Dates: start: 20100930, end: 20140403
  13. METHOTREXATE [Concomitant]
     Active Substance: METHOTREXATE
  14. BISOPROLOL [Concomitant]
     Active Substance: BISOPROLOL
  15. SOTALOL. [Concomitant]
     Active Substance: SOTALOL
  16. ACTEMRA [Suspect]
     Active Substance: TOCILIZUMAB
     Dosage: UNK
  17. VITAMIN D [Concomitant]
     Active Substance: CHOLECALCIFEROL
  18. ACTEMRA [Suspect]
     Active Substance: TOCILIZUMAB
     Dosage: UNK
  19. MONTELUKAST SODIUM. [Concomitant]
     Active Substance: MONTELUKAST SODIUM

REACTIONS (10)
  - Diarrhoea [Recovering/Resolving]
  - Haematochezia [Not Recovered/Not Resolved]
  - Tremor [Unknown]
  - Heart rate increased [Unknown]
  - Gastric disorder [Unknown]
  - Asthenia [Unknown]
  - Polypectomy [Unknown]
  - Diverticulum intestinal [Unknown]
  - Diverticulitis [Not Recovered/Not Resolved]
  - Malaise [Unknown]

NARRATIVE: CASE EVENT DATE: 2014
